FAERS Safety Report 14579147 (Version 9)
Quarter: 2025Q1

REPORT INFORMATION
  Report Type: Spontaneous
  Country: CA (occurrence: CA)
  Receive Date: 20180227
  Receipt Date: 20250131
  Transmission Date: 20250409
  Serious: Yes (Hospitalization, Other)
  Sender: MYLAN
  Company Number: CA-PFIZER INC-2018070648

PATIENT
  Age: 54 Year
  Sex: Male
  Weight: 62 kg

DRUGS (24)
  1. REVATIO [Suspect]
     Active Substance: SILDENAFIL CITRATE
     Indication: Pulmonary arterial hypertension
     Dosage: 80 MILLIGRAM, TID (3X/DAY REGIMEN)
     Route: 048
     Dates: start: 20110512
  2. REVATIO [Suspect]
     Active Substance: SILDENAFIL CITRATE
     Dosage: 80 MILLIGRAM, TID, TAKE FOUR TABLETS PO TID 360 WITH 12 REPEATS
     Route: 048
     Dates: start: 20110512
  3. EPOPROSTENOL [Concomitant]
     Active Substance: EPOPROSTENOL
     Route: 065
     Dates: start: 20131009, end: 20180220
  4. UPTRAVI [Concomitant]
     Active Substance: SELEXIPAG
     Indication: Product used for unknown indication
     Dosage: 1600 MICROGRAM, BID (2X/DAY)
     Route: 065
     Dates: start: 20180215
  5. UPTRAVI [Concomitant]
     Active Substance: SELEXIPAG
     Dosage: 1600 MICROGRAM, BID (2 EVERY 1 DAY)
     Route: 065
     Dates: start: 20180215
  6. DIGOXIN [Concomitant]
     Active Substance: DIGOXIN
     Indication: Product used for unknown indication
     Dosage: 125 MICROGRAM, QD (1X/DAY)
     Route: 065
  7. DIGOXIN [Concomitant]
     Active Substance: DIGOXIN
     Dosage: 125 MICROGRAM, QD (1 EVERY 1 DAY)
     Route: 065
  8. COUMADIN [Concomitant]
     Active Substance: WARFARIN SODIUM
     Dosage: 5 MILLIGRAM, QD (1X/DAY)
     Route: 065
  9. K dur [Concomitant]
     Indication: Product used for unknown indication
     Dosage: 1500 MILLIGRAM, BID (2X/DAY)
     Route: 065
  10. K dur [Concomitant]
     Route: 065
  11. K dur [Concomitant]
     Route: 065
  12. ARISTOCORT [Concomitant]
     Active Substance: TRIAMCINOLONE DIACETATE
     Indication: Product used for unknown indication
     Route: 065
  13. FLOMAX [Concomitant]
     Active Substance: TAMSULOSIN HYDROCHLORIDE
     Dosage: UNK, QD
     Route: 065
  14. NORVASC [Concomitant]
     Active Substance: AMLODIPINE BESYLATE
     Route: 065
  15. LOPERAMIDE [Concomitant]
     Active Substance: LOPERAMIDE
     Dosage: 2 MILLIGRAM, QD (DAILY)
     Route: 065
  16. LOPERAMIDE [Concomitant]
     Active Substance: LOPERAMIDE
     Dosage: 2 MILLIGRAM, QD (1 EVERY 1 DAY)
     Route: 065
  17. PANTOPRAZOLE SODIUM [Concomitant]
     Active Substance: PANTOPRAZOLE SODIUM
     Route: 065
  18. AMLODIPINE BESYLATE [Concomitant]
     Active Substance: AMLODIPINE BESYLATE
     Route: 065
  19. ARISTOCORT [Concomitant]
     Active Substance: TRIAMCINOLONE DIACETATE
     Indication: Product used for unknown indication
     Route: 065
  20. EPOPROSTENOL [Concomitant]
     Active Substance: EPOPROSTENOL
     Indication: Product used for unknown indication
     Route: 065
  21. COUMADIN [Concomitant]
     Active Substance: WARFARIN SODIUM
     Indication: Product used for unknown indication
     Dosage: 5 MILLIGRAM, QD (1 EVERY 1 DAY)
     Route: 065
  22. K dur [Concomitant]
     Indication: Product used for unknown indication
     Dosage: 1500 MILLIGRAM, BID (2 EVERY 1 DAY)
     Route: 065
  23. MORNIFLUMATE [Concomitant]
     Active Substance: MORNIFLUMATE
     Dosage: UNK, QD (1 EVERY 1 DAYS)
     Route: 065
  24. PANTOPRAZOLE SODIUM [Concomitant]
     Active Substance: PANTOPRAZOLE SODIUM
     Route: 065

REACTIONS (3)
  - Device breakage [Unknown]
  - Off label use [Unknown]
  - Prescribed overdose [Unknown]

NARRATIVE: CASE EVENT DATE: 20110512
